FAERS Safety Report 17162846 (Version 1)
Quarter: 2019Q4

REPORT INFORMATION
  Report Type: Report from Study
  Country: None (occurrence: US)
  Receive Date: 20191217
  Receipt Date: 20191217
  Transmission Date: 20200122
  Serious: Yes (Hospitalization, Other)
  Sender: FDA-Public Use
  Company Number: US-ABBVIE-18K-163-2358584-00

PATIENT
  Age: 36 Year
  Sex: Female

DRUGS (5)
  1. HUMIRA [Suspect]
     Active Substance: ADALIMUMAB
     Route: 058
     Dates: start: 20190823
  2. LEVOTHYROXINE. [Concomitant]
     Active Substance: LEVOTHYROXINE
     Indication: THYROID DISORDER
  3. HUMIRA [Suspect]
     Active Substance: ADALIMUMAB
     Indication: HIDRADENITIS
     Route: 058
     Dates: start: 201710, end: 20180503
  4. METFORMIN [Concomitant]
     Active Substance: METFORMIN HYDROCHLORIDE
     Indication: POLYCYSTIC OVARIES
  5. VERATRIL [Concomitant]
     Active Substance: VERAPAMIL HYDROCHLORIDE
     Indication: AFFECTIVE DISORDER

REACTIONS (8)
  - Maternal exposure during pregnancy [Unknown]
  - Weight gain poor [Unknown]
  - Postpartum haemorrhage [Recovering/Resolving]
  - Therapeutic response unexpected [Recovered/Resolved]
  - Hidradenitis [Not Recovered/Not Resolved]
  - Hepatic enzyme increased [Unknown]
  - Pre-existing condition improved [Recovered/Resolved]
  - Live birth [Unknown]

NARRATIVE: CASE EVENT DATE: 201803
